FAERS Safety Report 5601982-2 (Version None)
Quarter: 2008Q1

REPORT INFORMATION
  Report Type: 
  Country: None (occurrence: None)
  Receive Date: 20080118
  Receipt Date: 20080107
  Transmission Date: 20080703
  Serious: Yes (Other)
  Sender: FDA-Public Use
  Company Number: CHNY2007NZ03983

PATIENT
  Sex: Female

DRUGS (1)
  1. NICOTINE [Suspect]
     Dosage: VIA LACTATION

REACTIONS (2)
  - ABDOMINAL PAIN [None]
  - FEEDING DISORDER NEONATAL [None]
